FAERS Safety Report 5327790-8 (Version None)
Quarter: 2007Q2

REPORT INFORMATION
  Report Type: 
  Country: None (occurrence: None)
  Receive Date: 20070226
  Receipt Date: 20061122
  Transmission Date: 20071010
  Serious: Yes (Other)
  Sender: FDA-Public Use
  Company Number: WAES 0611USA06427

PATIENT
  Age: 79 Year
  Sex: Female

DRUGS (8)
  1. VYTORIN [Suspect]
     Indication: BLOOD CHOLESTEROL INCREASED
     Dosage: 10-20 MG/DAILY/PO
     Route: 048
     Dates: start: 20060401, end: 20061113
  2. FOSAMAX [Concomitant]
  3. SYNTHROID [Concomitant]
  4. CALCIUM CHLORIDE [Concomitant]
  5. ENALAPRIL MALEATE [Concomitant]
  6. IRON [Concomitant]
  7. PROPRANOLOL HYDROCHLORIDE [Concomitant]
  8. MULTIVITAMIN [Concomitant]

REACTIONS (1)
  - POLYMYALGIA RHEUMATICA [None]
